FAERS Safety Report 8246151-5 (Version None)
Quarter: 2012Q1

REPORT INFORMATION
  Report Type: 
  Country: None (occurrence: None)
  Receive Date: 20120330
  Receipt Date: 20120326
  Transmission Date: 20120608
  Serious: Yes (Disabling, Other)
  Sender: FDA-Public Use
  Company Number: PHHY2012CA014696

PATIENT
  Sex: Male

DRUGS (9)
  1. SENOKOT [Concomitant]
  2. LITHIUM CARBONATE [Suspect]
  3. CLOZARIL [Suspect]
     Dosage: 650 MG, DAILY
     Route: 048
     Dates: start: 20090710
  4. PREVACID [Concomitant]
  5. SERAX [Concomitant]
  6. DOCUSATE [Concomitant]
     Dosage: 100 MG, BID
  7. RISPERDAL [Concomitant]
  8. CELEXA [Concomitant]
  9. KEMADRIN [Concomitant]

REACTIONS (2)
  - FALL [None]
  - CONVULSION [None]
